FAERS Safety Report 7124415-6 (Version None)
Quarter: 2010Q4

REPORT INFORMATION
  Report Type: 
  Country: None (occurrence: None)
  Receive Date: 20101126
  Receipt Date: 20101115
  Transmission Date: 20110411
  Serious: Yes (Death)
  Sender: FDA-Public Use
  Company Number: GXKR2010US12790

PATIENT
  Age: 52 Year
  Sex: Male

DRUGS (1)
  1. VENLAFAXINE HCL [Suspect]
     Dosage: 75 MG
     Route: 048

REACTIONS (11)
  - CARDIAC ARREST [None]
  - CARDIOTOXICITY [None]
  - CLONUS [None]
  - CONFUSIONAL STATE [None]
  - CONVULSION [None]
  - ENDOTRACHEAL INTUBATION [None]
  - HYPERREFLEXIA [None]
  - LACERATION [None]
  - OVERDOSE [None]
  - RESUSCITATION [None]
  - SINUS TACHYCARDIA [None]
